FAERS Safety Report 7724351-8 (Version None)
Quarter: 2011Q3

REPORT INFORMATION
  Report Type: 
  Country: None (occurrence: None)
  Receive Date: 20110901
  Receipt Date: 20110825
  Transmission Date: 20111222
  Serious: Yes (Other)
  Sender: FDA-Public Use
  Company Number: DK-JNJFOC-20110607600

PATIENT
  Sex: Female
  Weight: 89 kg

DRUGS (3)
  1. REMICADE [Suspect]
     Route: 042
     Dates: start: 20110517, end: 20110531
  2. REMICADE [Suspect]
     Indication: CROHN'S DISEASE
     Route: 042
  3. REMICADE [Suspect]
     Route: 042

REACTIONS (9)
  - C-REACTIVE PROTEIN INCREASED [None]
  - ARTHRALGIA [None]
  - JOINT SWELLING [None]
  - PAIN [None]
  - OEDEMA [None]
  - MUSCULOSKELETAL STIFFNESS [None]
  - RASH [None]
  - GAIT DISTURBANCE [None]
  - APHTHOUS STOMATITIS [None]
